FAERS Safety Report 8444665-6 (Version None)
Quarter: 2012Q2

REPORT INFORMATION
  Report Type: 
  Country: None (occurrence: None)
  Receive Date: 20120323
  Receipt Date: 20110722
  Transmission Date: 20120825
  Serious: Yes (Hospitalization)
  Sender: FDA-Public Use
  Company Number: 163-21880-11063009

PATIENT
  Age: 60 Year
  Sex: Female

DRUGS (2)
  1. REVLIMID [Suspect]
     Indication: MULTIPLE MYELOMA
     Dosage: 15 MG, DAILY X 28 DAYS, PO
     Route: 048
     Dates: start: 20110510
  2. REVLIMID [Suspect]

REACTIONS (3)
  - FLUID RETENTION [None]
  - NERVE INJURY [None]
  - NEUROPATHY PERIPHERAL [None]
